FAERS Safety Report 8786643 (Version 1)
Quarter: 2012Q4

REPORT INFORMATION
  Report Type: 
  Country: US (occurrence: US)
  Receive Date: 20120914
  Receipt Date: 20120914
  Transmission Date: 20130627
  Serious: Yes (Hospitalization, Other)
  Sender: FDA-Public Use
  Company Number: PHHY2012US079646

PATIENT

DRUGS (2)
  1. AMANTADINE [Suspect]
     Indication: ANTIVIRAL TREATMENT
     Route: 064
  2. ANTIVIRALS FOR TREATMENT OF HIV INFECTIONS, C [Concomitant]
     Route: 064

REACTIONS (8)
  - Necrotising colitis [Unknown]
  - Foetal growth restriction [Unknown]
  - Foetal distress syndrome [Unknown]
  - Low birth weight baby [Unknown]
  - Premature delivery [Unknown]
  - Foetal exposure during pregnancy [Unknown]
  - Caesarean section [None]
  - Premature baby [None]
